FAERS Safety Report 10240541 (Version 1)
Quarter: 2014Q2

REPORT INFORMATION
  Report Type: Report from Study
  Country: IN (occurrence: IN)
  Receive Date: 20140617
  Receipt Date: 20140617
  Transmission Date: 20141212
  Serious: Yes (Other)
  Sender: FDA-Public Use
  Company Number: PHHY2014IN074266

PATIENT
  Age: 59 Year
  Sex: Female

DRUGS (2)
  1. ACLASTA [Suspect]
     Indication: OSTEOPOROSIS
     Dosage: 5 MG/100ML/ YEAR
     Route: 042
  2. ACLASTA [Suspect]
     Dosage: 5 MG/100ML/ YEAR
     Route: 042
     Dates: start: 20130419

REACTIONS (5)
  - Diabetes mellitus [Not Recovered/Not Resolved]
  - Blood uric acid increased [Recovered/Resolved]
  - Calcium deficiency [Not Recovered/Not Resolved]
  - Pain in extremity [Not Recovered/Not Resolved]
  - Pyrexia [Recovered/Resolved]
